FAERS Safety Report 18779531 (Version 3)
Quarter: 2022Q2

REPORT INFORMATION
  Report Type: Report from Study
  Country: US (occurrence: US)
  Receive Date: 20210125
  Receipt Date: 20220506
  Transmission Date: 20220720
  Serious: Yes (Hospitalization, Other)
  Sender: FDA-Public Use
  Company Number: US-TAKEDA-2021TUS003841

PATIENT
  Sex: Female

DRUGS (1)
  1. HUMAN IMMUNOGLOBULIN G [Suspect]
     Active Substance: HUMAN IMMUNOGLOBULIN G
     Indication: Primary immunodeficiency syndrome
     Dosage: UNK
     Route: 042
     Dates: end: 202009

REACTIONS (6)
  - Back disorder [Recovered/Resolved]
  - Post procedural haemorrhage [Recovered/Resolved]
  - Blood pressure decreased [Recovered/Resolved]
  - Rheumatoid arthritis [Unknown]
  - Immunoglobulins abnormal [Unknown]
  - Musculoskeletal discomfort [Unknown]
